FAERS Safety Report 9530996 (Version 1)
Quarter: 2013Q3

REPORT INFORMATION
  Report Type: Spontaneous
  Country: US (occurrence: None)
  Receive Date: 20130916
  Receipt Date: 20130916
  Transmission Date: 20140515
  Serious: No
  Sender: FDA-Public Use
  Company Number: None

PATIENT
  Age: 76 Year
  Sex: Female
  Weight: 69.85 kg

DRUGS (1)
  1. NAROPIN [Suspect]
     Indication: OSTEOARTHRITIS
     Dates: start: 20130604, end: 20130604

REACTIONS (1)
  - Pain [None]
